FAERS Safety Report 15332565 (Version 1)
Quarter: 2018Q3

REPORT INFORMATION
  Report Type: Report from Study
  Country: IT (occurrence: IT)
  Receive Date: 20180830
  Receipt Date: 20180830
  Transmission Date: 20181010
  Serious: Yes (Hospitalization)
  Sender: FDA-Public Use
  Company Number: IT-CONCORDIA PHARMACEUTICALS INC.-E2B_00016493

PATIENT
  Age: 82 Year
  Sex: Male

DRUGS (11)
  1. CORDARONE [Concomitant]
     Active Substance: AMIODARONE HYDROCHLORIDE
     Route: 048
  2. LUVION 50 MG COMPRESSE [Concomitant]
     Route: 048
  3. PANTORC 20 MG COMPRESSE GASTRORESISTENTI [Concomitant]
     Active Substance: PANTOPRAZOLE SODIUM
     Route: 048
  4. LORTAAN 50 MG COMPRESSE RIVESTITE CON FILM [Concomitant]
     Active Substance: LOSARTAN POTASSIUM
     Route: 048
  5. LANOXIN [Suspect]
     Active Substance: DIGOXIN
     Route: 048
  6. LASIX [Concomitant]
     Active Substance: FUROSEMIDE
     Route: 048
  7. XARELTO [Concomitant]
     Active Substance: RIVAROXABAN
     Route: 048
  8. LANOXIN [Suspect]
     Active Substance: DIGOXIN
     Route: 048
  9. CONGESCOR 10 MG, COMPRESSE FILM?RIVESTITE [Concomitant]
     Route: 048
  10. OMNIC 0,4 MG, CAPSULE RIGIDE A RILASCIO MODIFICATO [Concomitant]
     Route: 048
  11. SIMVASTATINA ACTAVIS [Concomitant]
     Active Substance: SIMVASTATIN
     Route: 048

REACTIONS (2)
  - Toxicity to various agents [Recovered/Resolved]
  - Bradycardia [Recovered/Resolved]

NARRATIVE: CASE EVENT DATE: 20180316
